FAERS Safety Report 4708846-7 (Version None)
Quarter: 2005Q3

REPORT INFORMATION
  Report Type: 
  Country: None (occurrence: None)
  Receive Date: 20050707
  Receipt Date: 20050321
  Transmission Date: 20060218
  Serious: Yes (Hospitalization)
  Sender: FDA-Public Use
  Company Number: 10728

PATIENT
  Age: 14 Year
  Sex: Male

DRUGS (2)
  1. METHOTREXATE [Suspect]
     Route: 042
     Dates: start: 20040216
  2. RIBAVIRIN [Suspect]
     Dosage: 200 MG FREQ
     Route: 048
     Dates: start: 20040208, end: 20040215

REACTIONS (5)
  - BLOOD CREATININE INCREASED [None]
  - DRUG INTERACTION [None]
  - DRUG LEVEL INCREASED [None]
  - DRUG THERAPEUTIC INCOMPATIBILITY [None]
  - PH URINE DECREASED [None]
